FAERS Safety Report 12507402 (Version 2)
Quarter: 2016Q3

REPORT INFORMATION
  Report Type: Spontaneous
  Country: JP (occurrence: JP)
  Receive Date: 20160629
  Receipt Date: 20160719
  Transmission Date: 20161109
  Serious: Yes (Death, Other)
  Sender: FDA-Public Use
  Company Number: JP-BRISTOL-MYERS SQUIBB COMPANY-BMS-2016-052637

PATIENT
  Age: 61 Year
  Sex: Male

DRUGS (3)
  1. NIVOLUMAB [Suspect]
     Active Substance: NIVOLUMAB
     Dosage: 150 MG, QD
     Route: 041
     Dates: start: 20160608, end: 20160608
  2. NIVOLUMAB [Suspect]
     Active Substance: NIVOLUMAB
     Indication: NON-SMALL CELL LUNG CANCER
     Dosage: 150 MG, QD
     Route: 041
     Dates: start: 20160511, end: 20160511
  3. NIVOLUMAB [Suspect]
     Active Substance: NIVOLUMAB
     Dosage: 150 MG, QD
     Route: 041
     Dates: start: 201605, end: 201605

REACTIONS (3)
  - Malignant neoplasm progression [Fatal]
  - Seizure [Recovered/Resolved]
  - Tri-iodothyronine free decreased [Unknown]

NARRATIVE: CASE EVENT DATE: 201606
